FAERS Safety Report 20853467 (Version 3)
Quarter: 2022Q2

REPORT INFORMATION
  Report Type: Spontaneous
  Country: CA (occurrence: CA)
  Receive Date: 20220520
  Receipt Date: 20220627
  Transmission Date: 20220721
  Serious: Yes (Hospitalization, Other)
  Sender: FDA-Public Use
  Company Number: CA-PFIZER INC-202200063643

PATIENT
  Age: 42 Year
  Sex: Female

DRUGS (9)
  1. XELJANZ [Suspect]
     Active Substance: TOFACITINIB CITRATE
     Indication: Psoriatic arthropathy
     Dosage: 5 MG, 1X/DAY
     Route: 048
     Dates: start: 20220123
  2. XELJANZ [Suspect]
     Active Substance: TOFACITINIB CITRATE
     Dosage: 10 MG, DAILY
     Route: 048
  3. XELJANZ [Suspect]
     Active Substance: TOFACITINIB CITRATE
     Dosage: 10 MG, DAILY
     Route: 048
     Dates: start: 20220508
  4. XELJANZ [Suspect]
     Active Substance: TOFACITINIB CITRATE
     Dosage: 5 MG, 2X/DAY
     Route: 048
  5. XELJANZ [Suspect]
     Active Substance: TOFACITINIB CITRATE
     Dosage: 5 MG, 2X/DAY
     Route: 048
     Dates: end: 2022
  6. AVENTYL [Concomitant]
     Active Substance: NORTRIPTYLINE HYDROCHLORIDE
     Dosage: UNK
  7. CANDESARTAN [Concomitant]
     Active Substance: CANDESARTAN
     Dosage: UNK
  8. EFFEXOR [Concomitant]
     Active Substance: VENLAFAXINE HYDROCHLORIDE
     Dosage: UNK
  9. SYNTHROID [Concomitant]
     Active Substance: LEVOTHYROXINE SODIUM
     Dosage: UNK

REACTIONS (13)
  - Migraine [Recovered/Resolved]
  - Kidney infection [Not Recovered/Not Resolved]
  - Illness [Recovered/Resolved]
  - Condition aggravated [Not Recovered/Not Resolved]
  - Vomiting [Recovered/Resolved]
  - Anxiety [Recovered/Resolved]
  - Off label use [Unknown]
  - Abdominal discomfort [Unknown]
  - Nausea [Unknown]
  - Muscle spasms [Not Recovered/Not Resolved]
  - Musculoskeletal stiffness [Not Recovered/Not Resolved]
  - Musculoskeletal stiffness [Not Recovered/Not Resolved]
  - Muscle fatigue [Not Recovered/Not Resolved]

NARRATIVE: CASE EVENT DATE: 20220101
